FAERS Safety Report 8306539-0 (Version None)
Quarter: 2012Q2

REPORT INFORMATION
  Report Type: 
  Country: None (occurrence: None)
  Receive Date: 20120420
  Receipt Date: 20120420
  Transmission Date: 20120825
  Serious: Yes (Hospitalization)
  Sender: FDA-Public Use
  Company Number: None

PATIENT
  Age: 53 Year
  Sex: Male
  Weight: 85.64 kg

DRUGS (1)
  1. CIPRO IN DEXTROSE 5% [Suspect]
     Indication: INFECTION
     Dosage: 400 MG ONCE IV
     Route: 042
     Dates: start: 20080302, end: 20080302

REACTIONS (3)
  - PRURITUS [None]
  - URTICARIA [None]
  - RASH [None]
